FAERS Safety Report 10914462 (Version 1)
Quarter: 2015Q1

REPORT INFORMATION
  Report Type: Spontaneous
  Country: US (occurrence: US)
  Receive Date: 20150313
  Receipt Date: 20150313
  Transmission Date: 20150721
  Serious: Yes (Other)
  Sender: FDA-Public Use
  Company Number: US-ASTRAZENECA-2015SE21668

PATIENT
  Age: 76 Year
  Sex: Female
  Weight: 65.8 kg

DRUGS (6)
  1. CRESTOR [Suspect]
     Active Substance: ROSUVASTATIN CALCIUM
     Indication: MYOCARDIAL INFARCTION
     Route: 048
     Dates: end: 201503
  2. NEXIUM [Suspect]
     Active Substance: ESOMEPRAZOLE MAGNESIUM
     Indication: GASTROOESOPHAGEAL REFLUX DISEASE
     Dosage: UNKNOWN DOSE, DAILY
     Route: 048
  3. CRESTOR [Suspect]
     Active Substance: ROSUVASTATIN CALCIUM
     Indication: BLOOD CHOLESTEROL INCREASED
     Route: 048
     Dates: end: 201503
  4. BONIVA [Concomitant]
     Active Substance: IBANDRONATE SODIUM
     Indication: BONE DISORDER
     Dosage: UNKNOWN DOSE, DAILY
     Route: 048
     Dates: start: 2000, end: 2015
  5. BONIVA [Concomitant]
     Active Substance: IBANDRONATE SODIUM
     Indication: BLOOD CALCIUM ABNORMAL
     Dosage: UNKNOWN DOSE, DAILY
     Route: 048
     Dates: start: 2000, end: 2015
  6. BONIVA [Concomitant]
     Active Substance: IBANDRONATE SODIUM
     Indication: OSTEOPOROSIS
     Dosage: UNKNOWN DOSE, DAILY
     Route: 048
     Dates: start: 2000, end: 2015

REACTIONS (11)
  - Body height decreased [Not Recovered/Not Resolved]
  - Quality of life decreased [Unknown]
  - Renal cancer [Unknown]
  - Pain [Unknown]
  - Myalgia [Unknown]
  - Glucose tolerance impaired [Unknown]
  - Pneumonia [Not Recovered/Not Resolved]
  - Eye swelling [Recovered/Resolved]
  - Gait disturbance [Unknown]
  - Pain in extremity [Unknown]
  - Swelling [Recovered/Resolved]

NARRATIVE: CASE EVENT DATE: 2006
